FAERS Safety Report 9223083 (Version 1)
Quarter: 2013Q2

REPORT INFORMATION
  Report Type: Report from Study
  Country: JP (occurrence: JP)
  Receive Date: 20130410
  Receipt Date: 20130410
  Transmission Date: 20140414
  Serious: Yes (Hospitalization)
  Sender: FDA-Public Use
  Company Number: PHHY2009JP35855

PATIENT
  Age: 60 Year
  Sex: Female
  Weight: 57 kg

DRUGS (16)
  1. RHUMAB-E25 [Suspect]
     Indication: ASTHMA
     Dosage: 150 MG, QMO
     Route: 058
     Dates: start: 20090810
  2. RHUMAB-E25 [Suspect]
     Dosage: 150 MG, UNK
     Route: 058
     Dates: start: 20090908
  3. RHUMAB-E25 [Suspect]
     Dosage: UNK
     Dates: start: 20100210
  4. RHUMAB-E25 [Suspect]
     Dosage: UNK
     Dates: start: 20100406
  5. RHUMAB-E25 [Suspect]
     Dosage: UNK
     Dates: start: 20100813, end: 20100813
  6. PREDNISOLONE [Suspect]
     Dosage: 5 MG, UNK
     Route: 048
     Dates: start: 20090707
  7. ADOAIR [Concomitant]
     Indication: ASTHMA
     Dosage: UNK
     Dates: start: 20090710, end: 20100308
  8. KIPRES [Concomitant]
     Indication: ASTHMA
     Dosage: 10 MG,
     Route: 048
     Dates: start: 20090710
  9. OLMETEC [Concomitant]
     Dosage: 20 MG,
     Route: 048
     Dates: start: 20090707
  10. PULMICORT [Concomitant]
     Indication: ASTHMA
     Dosage: UNK
     Dates: start: 20090707, end: 20100308
  11. UNIPHYL [Concomitant]
     Indication: ASTHMA
     Dosage: 200 MG,
     Route: 048
     Dates: start: 20090710
  12. MEPTIN AIR [Concomitant]
     Indication: ASTHMA
     Dosage: UNK
     Dates: start: 20090707
  13. CRESTOR [Concomitant]
     Dosage: 2.5 MG, UNK
     Route: 048
     Dates: start: 20090707
  14. OMEPRAL [Concomitant]
     Indication: PROPHYLAXIS
     Dosage: 10 MG, UNK
     Route: 048
     Dates: start: 20090707
  15. FOSAMAC [Concomitant]
     Indication: PROPHYLAXIS
     Dosage: 20 DF, UNK
     Route: 048
     Dates: start: 20090707
  16. SYMBICORT [Concomitant]
     Indication: ASTHMA
     Dosage: UNK
     Dates: start: 20100309

REACTIONS (5)
  - Bronchitis [Recovered/Resolved]
  - Malaise [Not Recovered/Not Resolved]
  - Chest pain [Recovered/Resolved]
  - Injection site haemorrhage [Not Recovered/Not Resolved]
  - Amnesia [Unknown]
